FAERS Safety Report 9259135 (Version 1)
Quarter: 2013Q2

REPORT INFORMATION
  Report Type: Spontaneous
  Country: SE (occurrence: SE)
  Receive Date: 20130426
  Receipt Date: 20130426
  Transmission Date: 20140414
  Serious: Yes (Death)
  Sender: FDA-Public Use
  Company Number: SE-ROXANE LABORATORIES, INC.-2013-RO-00592RO

PATIENT
  Age: 25 Year
  Sex: Male

DRUGS (10)
  1. BUPRENORPHINE HYDROCHLORIDE [Suspect]
  2. SERTRALINE [Suspect]
  3. ALPRAZOLAM INTENSOL [ORAL SOLUTION (CONCENTRATE)] 1 MG/ML [Suspect]
  4. DIAZEPAM [Suspect]
  5. OXAZEPAM [Suspect]
  6. ALIMEMAZINE [Suspect]
  7. ACETAMINOPHEN [Suspect]
  8. PROMETAZINE [Suspect]
  9. TRAMADOL [Suspect]
  10. TETRAHYDROCANNABINOL [Suspect]

REACTIONS (3)
  - Overdose [Fatal]
  - Overdose [None]
  - Toxicity to various agents [None]
